FAERS Safety Report 5179704-1 (Version None)
Quarter: 2006Q4

REPORT INFORMATION
  Report Type: 
  Country: None (occurrence: None)
  Receive Date: 20061211
  Receipt Date: 20061129
  Transmission Date: 20070319
  Serious: Yes (Other)
  Sender: FDA-Public Use
  Company Number: 2006148103

PATIENT
  Age: 46 Year
  Sex: Female
  Weight: 83.4619 kg

DRUGS (11)
  1. DEPO-MEDROL [Suspect]
     Indication: SACROILIITIS
  2. NORVASC [Concomitant]
  3. HYDROCODONE BITARTRATE [Concomitant]
  4. ROBAXIN [Concomitant]
  5. ZELNORM [Concomitant]
  6. DETROL LA [Concomitant]
  7. LUNESTA [Concomitant]
  8. HYDROXYZINE [Concomitant]
  9. VYTORIN [Concomitant]
  10. NASONEX [Concomitant]
  11. TOPROL-XL [Concomitant]

REACTIONS (3)
  - BLOOD PRESSURE DIASTOLIC INCREASED [None]
  - HEART RATE INCREASED [None]
  - PALPITATIONS [None]
